FAERS Safety Report 9746415 (Version 1)
Quarter: 2013Q4

REPORT INFORMATION
  Report Type: Spontaneous
  Country: IT (occurrence: IT)
  Receive Date: 20131211
  Receipt Date: 20131211
  Transmission Date: 20140711
  Serious: Yes (Other)
  Sender: FDA-Public Use
  Company Number: IT-VIIV HEALTHCARE LIMITED-B0951149A

PATIENT
  Age: 36 Year
  Sex: Male

DRUGS (2)
  1. LAMIVUDINE-HIV [Suspect]
     Indication: HIV INFECTION
     Route: 065
     Dates: start: 20040101, end: 20130101
  2. ABACAVIR SULPHATE [Suspect]
     Indication: HIV INFECTION
     Route: 065
     Dates: start: 20090101, end: 20130101

REACTIONS (1)
  - Renal failure [Unknown]
